FAERS Safety Report 21582136 (Version 4)
Quarter: 2022Q4

REPORT INFORMATION
  Report Type: Report from Study
  Country: US (occurrence: US)
  Receive Date: 20221111
  Receipt Date: 20221229
  Transmission Date: 20230113
  Serious: No
  Sender: FDA-Public Use
  Company Number: US-ABBVIE-22K-163-4522689-00

PATIENT
  Sex: Female

DRUGS (1)
  1. IMBRUVICA [Suspect]
     Active Substance: IBRUTINIB
     Indication: Chronic lymphocytic leukaemia
     Route: 048

REACTIONS (8)
  - Dizziness [Unknown]
  - Oral pain [Unknown]
  - Swelling [Unknown]
  - Contusion [Unknown]
  - Lip swelling [Unknown]
  - Urinary tract infection [Unknown]
  - Cheilitis [Unknown]
  - Dry mouth [Unknown]
